FAERS Safety Report 9195903 (Version 1)
Quarter: 2013Q1

REPORT INFORMATION
  Report Type: Spontaneous
  Country: CH (occurrence: CH)
  Receive Date: 20130328
  Receipt Date: 20130328
  Transmission Date: 20140127
  Serious: Yes (Hospitalization, Other)
  Sender: FDA-Public Use
  Company Number: CH-CELGENEUS-151-21880-13021050

PATIENT
  Age: 68 Year
  Sex: Male
  Weight: 74 kg

DRUGS (16)
  1. REVLIMID [Suspect]
     Indication: PLASMA CELL MYELOMA
     Dosage: 25 MILLIGRAM
     Route: 048
     Dates: start: 20120809, end: 20120829
  2. REVLIMID [Suspect]
     Dosage: 25 MILLIGRAM
     Route: 048
     Dates: start: 20120906, end: 20120926
  3. REVLIMID [Suspect]
     Dosage: 25 MILLIGRAM
     Route: 048
     Dates: start: 20121005, end: 20121025
  4. REVLIMID [Suspect]
     Dosage: 25 MILLIGRAM
     Route: 048
     Dates: start: 20121101, end: 20121121
  5. DEXAMETHASONE [Suspect]
     Indication: PLASMA CELL MYELOMA
     Route: 048
     Dates: start: 20120809, end: 20120830
  6. DEXAMETHASONE [Suspect]
     Route: 048
     Dates: start: 20120906, end: 20120927
  7. DEXAMETHASONE [Suspect]
     Route: 048
     Dates: start: 20121005, end: 20121026
  8. DEXAMETHASONE [Suspect]
     Route: 048
     Dates: start: 20121101, end: 20121122
  9. BENDAMUSTINE [Suspect]
     Indication: PLASMA CELL MYELOMA
     Dosage: 135 MILLIGRAM
     Route: 041
     Dates: start: 20120809, end: 20120810
  10. BENDAMUSTINE [Suspect]
     Dosage: 135 MILLIGRAM
     Route: 041
     Dates: start: 20120906, end: 20120907
  11. BENDAMUSTINE [Suspect]
     Dosage: 135 MILLIGRAM
     Route: 041
     Dates: start: 20121005, end: 20121006
  12. BENDAMUSTINE [Suspect]
     Dosage: 135 MILLIGRAM
     Route: 041
     Dates: start: 20121101, end: 20121102
  13. NEULASTA [Concomitant]
     Indication: PRODUCT USED FOR UNKNOWN INDICATION
     Route: 065
     Dates: start: 20120910
  14. NEULASTA [Concomitant]
     Route: 058
     Dates: start: 20121009
  15. NEULASTA [Concomitant]
     Route: 058
     Dates: start: 20121103, end: 20121103
  16. NEULASTA [Concomitant]
     Route: 058
     Dates: start: 20121213, end: 20121213

REACTIONS (1)
  - Sternal fracture [Not Recovered/Not Resolved]
